FAERS Safety Report 19192270 (Version 1)
Quarter: 2021Q2

REPORT INFORMATION
  Report Type: Spontaneous
  Country: US (occurrence: US)
  Receive Date: 20210429
  Receipt Date: 20210429
  Transmission Date: 20210717
  Serious: Yes (Hospitalization, Other)
  Sender: FDA-Public Use
  Company Number: US-AUROBINDO-AUR-APL-2021-016449

PATIENT
  Age: 26 Year
  Sex: Female

DRUGS (1)
  1. CAPECITABINE. [Suspect]
     Active Substance: CAPECITABINE
     Indication: BREAST CANCER METASTATIC
     Dosage: UNK
     Route: 065

REACTIONS (16)
  - Febrile neutropenia [Unknown]
  - Neurotoxicity [Unknown]
  - Consciousness fluctuating [Unknown]
  - Deep vein thrombosis [Unknown]
  - Duodenal ulcer haemorrhage [Unknown]
  - Mental status changes [Unknown]
  - Diarrhoea [Unknown]
  - Mucosal inflammation [Unknown]
  - Nausea [Unknown]
  - Rash [Unknown]
  - Vomiting [Unknown]
  - Bacteraemia [Unknown]
  - Odynophagia [Unknown]
  - Dysphagia [Unknown]
  - Pyrexia [Unknown]
  - Leukoencephalopathy [Unknown]
